FAERS Safety Report 6881376-2 (Version None)
Quarter: 2010Q3

REPORT INFORMATION
  Report Type: 
  Country: None (occurrence: None)
  Receive Date: 20100728
  Receipt Date: 20100728
  Transmission Date: 20110219
  Serious: Yes (Disabling)
  Sender: FDA-Public Use
  Company Number: None

PATIENT
  Age: 51 Year
  Sex: Female

DRUGS (5)
  1. ARIPIPRAZOLE [Suspect]
     Indication: BIPOLAR DISORDER
     Dosage: 10-30MG AT BEDTIME PO
     Route: 048
     Dates: start: 20080512, end: 20090318
  2. CLONAZEPAM [Concomitant]
  3. PRMIPEXOLE [Concomitant]
  4. TRAZODONE [Concomitant]
  5. TEMAZEPAM [Concomitant]

REACTIONS (4)
  - BALANCE DISORDER [None]
  - DYSARTHRIA [None]
  - FATIGUE [None]
  - MUSCULAR WEAKNESS [None]
